FAERS Safety Report 12711950 (Version 3)
Quarter: 2016Q3

REPORT INFORMATION
  Report Type: Report from Study
  Country: CA (occurrence: CA)
  Receive Date: 20160902
  Receipt Date: 20160913
  Transmission Date: 20161109
  Serious: Yes (Death, Hospitalization)
  Sender: FDA-Public Use
  Company Number: PHHY2016CA120513

PATIENT
  Age: 45 Year
  Sex: Female

DRUGS (10)
  1. ATORVASTATIN [Concomitant]
     Active Substance: ATORVASTATIN
     Indication: PRODUCT USED FOR UNKNOWN INDICATION
     Dosage: 80 MG, QD (AT BEDTIME)
     Route: 065
  2. LASIX [Concomitant]
     Active Substance: FUROSEMIDE
     Indication: PRODUCT USED FOR UNKNOWN INDICATION
     Dosage: 20 MG, QD
     Route: 065
  3. COSENTYX [Suspect]
     Active Substance: SECUKINUMAB
     Indication: PSORIASIS
     Dosage: 300 MG, QMO
     Route: 058
     Dates: start: 20160105, end: 201604
  4. ELTROXIN [Concomitant]
     Active Substance: LEVOTHYROXINE
     Indication: PRODUCT USED FOR UNKNOWN INDICATION
     Dosage: 2 DF, QD
     Route: 065
  5. ONGLYZA [Concomitant]
     Active Substance: SAXAGLIPTIN HYDROCHLORIDE
     Indication: PRODUCT USED FOR UNKNOWN INDICATION
     Dosage: 5 MG, QD
     Route: 065
  6. ASPIRIN. [Concomitant]
     Active Substance: ASPIRIN
     Indication: PRODUCT USED FOR UNKNOWN INDICATION
     Dosage: 81 MG, QD
     Route: 065
  7. METOPROLOL. [Suspect]
     Active Substance: METOPROLOL
     Indication: PRODUCT USED FOR UNKNOWN INDICATION
     Dosage: 37.5 MG, BID
     Route: 048
     Dates: end: 2016
  8. METFORMIN [Concomitant]
     Active Substance: METFORMIN HYDROCHLORIDE
     Indication: PRODUCT USED FOR UNKNOWN INDICATION
     Dosage: 1 G, BID
     Route: 065
  9. PLAVIX [Concomitant]
     Active Substance: CLOPIDOGREL BISULFATE
     Indication: PRODUCT USED FOR UNKNOWN INDICATION
     Dosage: 75 MG, QD
     Route: 065
  10. COVERSYL [Concomitant]
     Active Substance: PERINDOPRIL
     Indication: PRODUCT USED FOR UNKNOWN INDICATION
     Dosage: 8 MG, QD
     Route: 065

REACTIONS (30)
  - Malaise [Unknown]
  - Dyspnoea [Unknown]
  - Oedema peripheral [Unknown]
  - Jaundice [Unknown]
  - Blood bilirubin increased [Unknown]
  - Early satiety [Unknown]
  - Hepatic cancer [Fatal]
  - Diarrhoea [Unknown]
  - Asthenia [Unknown]
  - Abdominal distension [Unknown]
  - Hypophagia [Unknown]
  - Coagulopathy [Unknown]
  - Anorectal discomfort [Unknown]
  - Hepatorenal failure [Unknown]
  - Anal haemorrhage [Unknown]
  - Weight decreased [Unknown]
  - Lactic acidosis [Not Recovered/Not Resolved]
  - Ascites [Unknown]
  - Blood potassium increased [Unknown]
  - Abasia [Unknown]
  - Acute hepatic failure [Unknown]
  - Dysstasia [Unknown]
  - Blood pressure decreased [Unknown]
  - Acute kidney injury [Unknown]
  - Vomiting [Unknown]
  - Delirium [Unknown]
  - Metastases to liver [Unknown]
  - Shock [Fatal]
  - Waist circumference increased [Unknown]
  - Ocular icterus [Unknown]

NARRATIVE: CASE EVENT DATE: 20160503
